FAERS Safety Report 7531568-4 (Version None)
Quarter: 2011Q2

REPORT INFORMATION
  Report Type: 
  Country: None (occurrence: None)
  Receive Date: 20110606
  Receipt Date: 20110606
  Transmission Date: 20111010
  Serious: No
  Sender: FDA-Public Use
  Company Number: None

PATIENT
  Age: 18 Year
  Sex: Female

DRUGS (2)
  1. EZN-2285 (SC-PEG E.COLI-ASPARAGINASE) [Suspect]
     Dates: start: 20090403, end: 20090403
  2. DAUNORUBICIN HCL [Suspect]
     Dates: start: 20090331, end: 20090407

REACTIONS (6)
  - HEPATIC STEATOSIS [None]
  - NAUSEA [None]
  - VOMITING [None]
  - PERITONITIS [None]
  - LIVER DISORDER [None]
  - PEPTIC ULCER PERFORATION [None]
